FAERS Safety Report 5746061-9 (Version None)
Quarter: 2008Q2

REPORT INFORMATION
  Report Type: 
  Country: None (occurrence: None)
  Receive Date: 20080522
  Receipt Date: 20080516
  Transmission Date: 20081010
  Serious: Yes (Hospitalization)
  Sender: FDA-Public Use
  Company Number: BR-JNJFOC-20080503629

PATIENT
  Sex: Female

DRUGS (2)
  1. REMINYL ER [Suspect]
     Route: 048
  2. REMINYL ER [Suspect]
     Indication: DRUG USE FOR UNKNOWN INDICATION
     Route: 048

REACTIONS (1)
  - VENOUS THROMBOSIS [None]
